FAERS Safety Report 7790465-X (Version None)
Quarter: 2011Q3

REPORT INFORMATION
  Report Type: 
  Country: None (occurrence: None)
  Receive Date: 20110930
  Receipt Date: 20110926
  Transmission Date: 20111222
  Serious: Yes (Death, Hospitalization, Other)
  Sender: FDA-Public Use
  Company Number: US-BAYER-2011-060408

PATIENT
  Sex: Male

DRUGS (3)
  1. PAXIL [Concomitant]
  2. AVELOX [Suspect]
     Indication: SINUS DISORDER
     Dosage: 400 MG, QD
     Route: 048
     Dates: start: 20100101, end: 20100101
  3. KLONOPIN [Concomitant]

REACTIONS (6)
  - PSYCHOTIC DISORDER [None]
  - SUICIDAL IDEATION [None]
  - PANIC REACTION [None]
  - COMPLETED SUICIDE [None]
  - ANXIETY [None]
  - AGITATION [None]
